FAERS Safety Report 6369875-3 (Version None)
Quarter: 2009Q3

REPORT INFORMATION
  Report Type: 
  Country: None (occurrence: None)
  Receive Date: 20090923
  Receipt Date: 20070504
  Transmission Date: 20100115
  Serious: Yes (Other)
  Sender: FDA-Public Use
  Company Number: US-ASTRAZENECA-2006UW11629

PATIENT
  Age: 582 Month
  Sex: Male
  Weight: 83 kg

DRUGS (14)
  1. SEROQUEL [Suspect]
     Indication: BIPOLAR DISORDER
     Route: 048
     Dates: start: 20050101
  2. SEROQUEL [Suspect]
     Indication: POST-TRAUMATIC STRESS DISORDER
     Route: 048
     Dates: start: 20050101
  3. SEROQUEL [Suspect]
     Route: 048
     Dates: start: 20050722, end: 20061128
  4. SEROQUEL [Suspect]
     Route: 048
     Dates: start: 20050722, end: 20061128
  5. SEROQUEL [Suspect]
     Route: 048
     Dates: start: 20051226
  6. SEROQUEL [Suspect]
     Route: 048
     Dates: start: 20051226
  7. SEROQUEL [Suspect]
     Route: 048
  8. SEROQUEL [Suspect]
     Route: 048
  9. ZYPREXA/SYMBYAX [Concomitant]
     Dates: start: 20041116, end: 20050722
  10. ZYPREXA/SYMBYAX [Concomitant]
     Dates: start: 20011015
  11. ZOLOFT [Concomitant]
     Dates: start: 20011010
  12. CELEXA [Concomitant]
     Dates: start: 20000608
  13. LEXAPRO [Concomitant]
     Dates: start: 20051215
  14. SYNTHROID [Concomitant]
     Dates: start: 19970703

REACTIONS (3)
  - DIABETES MELLITUS [None]
  - PANCREATITIS [None]
  - TYPE 2 DIABETES MELLITUS [None]
